FAERS Safety Report 6395477-9 (Version None)
Quarter: 2009Q4

REPORT INFORMATION
  Report Type: 
  Country: None (occurrence: None)
  Receive Date: 20091006
  Receipt Date: 20090924
  Transmission Date: 20100525
  Serious: Yes (Death, Hospitalization)
  Sender: FDA-Public Use
  Company Number: 430029M09USA

PATIENT
  Age: 87 Year
  Sex: Male
  Weight: 73.9363 kg

DRUGS (24)
  1. NOVANTRONE [Suspect]
     Indication: PROSTATE CANCER
     Dosage: 22 MG, 1 IN 3 WEEKS, INTRAVENOUS
     Route: 042
     Dates: start: 20081202, end: 20081223
  2. CETUXIMAB (CETUXIMAB) [Suspect]
     Indication: PROSTATE CANCER
     Dosage: 744 MG, 1 IN 1 WEEKS, INTRAVENOUS
     Route: 042
     Dates: start: 20081202, end: 20081230
  3. REMERON [Concomitant]
  4. ZOCOR [Concomitant]
  5. ASPIRIN [Concomitant]
  6. TENORMIN [Concomitant]
  7. LUPRON [Concomitant]
  8. MULTIVITAMIN [Concomitant]
  9. SELENIUM (SELENIUM) [Concomitant]
  10. TYLENOL NUMBER 3 (PANADEINE CO) [Concomitant]
  11. MEGACE [Concomitant]
  12. COMPAZINE [Concomitant]
  13. TUMS (CALCIUM CARBONATE) [Concomitant]
  14. PREDNISONE [Concomitant]
  15. ZOFRAN [Concomitant]
  16. MORPHINE [Concomitant]
  17. LORTAB (VICODIN) [Concomitant]
  18. ATIVAN [Concomitant]
  19. FRAGMIN [Concomitant]
  20. LASIX (FUROSEMIDE /00032601/) [Concomitant]
  21. DOPAMINE (DOPAMINE /00360701/) [Concomitant]
  22. PROTONIX [Concomitant]
  23. DUONEBS (COMBIVENT /01261001/) [Concomitant]
  24. LEVOPHED [Concomitant]

REACTIONS (23)
  - ACUTE MYOCARDIAL INFARCTION [None]
  - ACUTE RESPIRATORY FAILURE [None]
  - ATELECTASIS [None]
  - BLOOD PH INCREASED [None]
  - BODY TEMPERATURE DECREASED [None]
  - BUNDLE BRANCH BLOCK RIGHT [None]
  - CARDIAC FAILURE CONGESTIVE [None]
  - CHEST PAIN [None]
  - CONFUSIONAL STATE [None]
  - DYSPNOEA [None]
  - EJECTION FRACTION DECREASED [None]
  - HYPOTENSION [None]
  - MITRAL VALVE INCOMPETENCE [None]
  - MULTI-ORGAN FAILURE [None]
  - NEUTROPENIA [None]
  - PAIN [None]
  - PANCYTOPENIA [None]
  - PLEURAL EFFUSION [None]
  - PNEUMONIA [None]
  - SEPTIC SHOCK [None]
  - SINUS TACHYCARDIA [None]
  - SUPRAVENTRICULAR EXTRASYSTOLES [None]
  - VENTRICULAR HYPOKINESIA [None]
